FAERS Safety Report 16745763 (Version 2)
Quarter: 2019Q3

REPORT INFORMATION
  Report Type: Spontaneous
  Country: US (occurrence: US)
  Receive Date: 20190827
  Receipt Date: 20190903
  Transmission Date: 20191005
  Serious: No
  Sender: FDA-Public Use
  Company Number: US-IPSEN BIOPHARMACEUTICALS, INC.-2019-14921

PATIENT
  Age: 58 Year
  Sex: Female

DRUGS (2)
  1. RESTYLANE REFYNE [Suspect]
     Active Substance: HYALURONIC ACID\LIDOCAINE
     Indication: SKIN WRINKLING
     Dosage: NOT REPORTED
     Dates: start: 20190715, end: 20190715
  2. DYSPORT [Suspect]
     Active Substance: ABOBOTULINUMTOXINA
     Indication: SKIN COSMETIC PROCEDURE
     Dosage: NOT REPORTED
     Route: 065
     Dates: start: 20190715, end: 20190715

REACTIONS (2)
  - Skin exfoliation [Unknown]
  - Erythema [Unknown]

NARRATIVE: CASE EVENT DATE: 20190816
